FAERS Safety Report 7018477-4 (Version None)
Quarter: 2010Q3

REPORT INFORMATION
  Report Type: 
  Country: None (occurrence: None)
  Receive Date: 20100924
  Receipt Date: 20100413
  Transmission Date: 20110219
  Serious: Yes (Disabling)
  Sender: FDA-Public Use
  Company Number: APP200900459

PATIENT
  Age: 31 Year
  Sex: Male

DRUGS (10)
  1. SENSORCAINE [Suspect]
     Indication: MUSCULOSKELETAL PAIN
     Dosage: SEE IMAGE
     Route: 014
     Dates: start: 20030604
  2. BUPIVACAINE HYDROCHLORIDE AND EPINEPHRINE [Suspect]
     Indication: MUSCULOSKELETAL PAIN
     Dosage: WITH 1% XYLOCAINE LEFT SHOULDER, 60  ML
     Dates: start: 20030911
  3. BUPIVACAINE HYDROCHLORIDE AND EPINEPHRINE [Suspect]
     Indication: MUSCULOSKELETAL PAIN
     Dosage: WITH 1% XYLOCAINE LEFT SHOULDER, 60  ML
     Dates: start: 20030911
  4. DEPO-MEDROL [Suspect]
     Indication: PROCEDURAL PAIN
     Dosage: 120 MG, INTRA-ARTICULAR
     Dates: start: 20030911
  5. DEPO-MEDROL [Suspect]
     Indication: PROPHYLAXIS
     Dosage: 120 MG, INTRA-ARTICULAR
     Dates: start: 20030911
  6. DEPO-MEDROL [Suspect]
     Indication: SCAR
     Dosage: 120 MG, INTRA-ARTICULAR
     Dates: start: 20030911
  7. ADVANCED INFUSION PAIN PUMP [Suspect]
     Indication: MUSCULOSKELETAL PAIN
     Dosage: LEFT SHOULDER
     Dates: start: 20030604
  8. ARTHROTEC [Suspect]
     Indication: MUSCULOSKELETAL PAIN
     Dosage: LEFT SHOULDER
     Dates: start: 20030911
  9. ANCEF [Concomitant]
  10. PEPCID [Concomitant]

REACTIONS (12)
  - ATROPHY [None]
  - CYST [None]
  - DISCOMFORT [None]
  - HYPERSENSITIVITY [None]
  - INTERVERTEBRAL DISC PROTRUSION [None]
  - INTERVERTEBRAL DISC SPACE NARROWING [None]
  - MUSCULOSKELETAL PAIN [None]
  - PERIARTHRITIS [None]
  - POST PROCEDURAL INFECTION [None]
  - REFUSAL OF TREATMENT BY PATIENT [None]
  - SCAR [None]
  - SPINAL OSTEOARTHRITIS [None]
